FAERS Safety Report 6195005-7 (Version None)
Quarter: 2009Q2

REPORT INFORMATION
  Report Type: 
  Country: None (occurrence: None)
  Receive Date: 20090519
  Receipt Date: 20090508
  Transmission Date: 20091009
  Serious: Yes (Death, Hospitalization)
  Sender: FDA-Public Use
  Company Number: A0784670A

PATIENT
  Sex: Male
  Weight: 65.9 kg

DRUGS (1)
  1. AVANDIA [Suspect]
     Dosage: 4MG UNKNOWN
     Route: 048
     Dates: end: 20070118

REACTIONS (5)
  - ARTHRALGIA [None]
  - DEATH [None]
  - MONOPLEGIA [None]
  - POOR PERIPHERAL CIRCULATION [None]
  - SWELLING [None]
